FAERS Safety Report 8607375-8 (Version None)
Quarter: 2012Q3

REPORT INFORMATION
  Report Type: 
  Country: None (occurrence: None)
  Receive Date: 20120821
  Receipt Date: 20120817
  Transmission Date: 20120928
  Serious: No
  Sender: FDA-Public Use
  Company Number: US-PFIZER INC-2012202793

PATIENT
  Age: 70 Year
  Sex: Female
  Weight: 77.098 kg

DRUGS (4)
  1. TYLENOL [Suspect]
     Indication: HEADACHE
  2. METOPROLOL [Concomitant]
     Indication: BLOOD PRESSURE INCREASED
     Dosage: 25 MG, DAILY
  3. TYLENOL [Suspect]
     Indication: OSTEOARTHRITIS
     Dosage: 650 MG, 2X/DAY
     Dates: start: 20120101
  4. CELEBREX [Suspect]
     Indication: OSTEOARTHRITIS
     Dosage: 100 MG, 2X/DAY

REACTIONS (2)
  - DRUG INEFFECTIVE [None]
  - OSTEOARTHRITIS [None]
